FAERS Safety Report 14934286 (Version 2)
Quarter: 2019Q3

REPORT INFORMATION
  Report Type: Report from Study
  Country: EG (occurrence: EG)
  Receive Date: 20180524
  Receipt Date: 20190809
  Transmission Date: 20191004
  Serious: Yes (Other)
  Sender: FDA-Public Use
  Company Number: EG-APOPHARMA USA, INC.-2018AP013497

PATIENT
  Age: 10 Year
  Sex: Female
  Weight: 30 kg

DRUGS (11)
  1. FOLIC ACID. [Concomitant]
     Active Substance: FOLIC ACID
     Indication: ANAEMIA MEGALOBLASTIC
     Dosage: 5 MG, QD
     Route: 048
     Dates: start: 20090502
  2. PIRACETAM [Concomitant]
     Active Substance: PIRACETAM
     Indication: PROPHYLAXIS
     Dosage: 100 MG/KG, QD
     Route: 048
     Dates: start: 20090502
  3. L CARNITINE                        /00878602/ [Concomitant]
     Indication: IMPAIRED QUALITY OF LIFE
     Dosage: 50 MG/KG, OTHER
     Route: 048
     Dates: start: 20090502
  4. HYDROXYUREA. [Concomitant]
     Active Substance: HYDROXYUREA
     Indication: PROPHYLAXIS
     Dosage: 25 MG/KG, QD
     Route: 042
     Dates: start: 2017, end: 20180506
  5. HYDROXYUREA. [Concomitant]
     Active Substance: HYDROXYUREA
     Dosage: 25 MG/KG, QD
     Route: 042
     Dates: start: 20180515
  6. DEFERIPRONE [Suspect]
     Active Substance: DEFERIPRONE
     Indication: HAEMOGLOBIN C DISEASE
     Dosage: 25 MG/KG, TID
     Route: 048
     Dates: start: 20170210, end: 20180506
  7. DEFERIPRONE [Suspect]
     Active Substance: DEFERIPRONE
     Indication: HAEMOSIDEROSIS
     Dosage: 33 MG/KG, TID
     Route: 048
     Dates: start: 20160605, end: 20160801
  8. DEFERIPRONE [Suspect]
     Active Substance: DEFERIPRONE
     Dosage: 25 MG/KG, TID
     Route: 048
     Dates: start: 20160802, end: 20160207
  9. DEFERIPRONE [Suspect]
     Active Substance: DEFERIPRONE
     Dosage: 25 MG/KG, TID
     Route: 048
     Dates: start: 20180515
  10. DECAL B12 [Concomitant]
     Indication: OSTEOPOROSIS PROPHYLAXIS
     Dosage: 1000 IU, QD
     Route: 048
     Dates: start: 20090502
  11. PENICILLIN                         /00000901/ [Concomitant]
     Active Substance: PENICILLIN G
     Indication: INFECTION PROPHYLAXIS
     Dosage: 1200000 IU, Q.M.T.
     Route: 030
     Dates: start: 20090302

REACTIONS (1)
  - Neutropenia [Recovered/Resolved]

NARRATIVE: CASE EVENT DATE: 20180503
